FAERS Safety Report 17521501 (Version 2)
Quarter: 2020Q2

REPORT INFORMATION
  Report Type: Spontaneous
  Country: US (occurrence: US)
  Receive Date: 20200310
  Receipt Date: 20200408
  Transmission Date: 20200713
  Serious: Yes (Other)
  Sender: FDA-Public Use
  Company Number: US-BRISTOL-MYERS SQUIBB COMPANY-BMS-2020-017868

PATIENT
  Age: 37 Year
  Sex: Male

DRUGS (3)
  1. NULOJIX [Suspect]
     Active Substance: BELATACEPT
     Indication: RENAL TRANSPLANT
     Route: 065
  2. MYCOPHENOLIC ACID. [Concomitant]
     Active Substance: MYCOPHENOLIC ACID
     Indication: TRANSPLANT
     Dosage: 360 MILLIGRAM, BID
     Route: 065
     Dates: start: 20191105
  3. NULOJIX [Suspect]
     Active Substance: BELATACEPT
     Indication: PROPHYLAXIS AGAINST TRANSPLANT REJECTION
     Dosage: 30 MILLIGRAM, Q4WK
     Route: 042
     Dates: start: 20171116

REACTIONS (2)
  - Urinary tract infection [Unknown]
  - Tubulointerstitial nephritis [Unknown]

NARRATIVE: CASE EVENT DATE: 20200228
